FAERS Safety Report 24239369 (Version 6)
Quarter: 2025Q1

REPORT INFORMATION
  Report Type: Report from Study
  Country: US (occurrence: US)
  Receive Date: 20240822
  Receipt Date: 20250306
  Transmission Date: 20250409
  Serious: Yes (Other)
  Sender: SUNOVION
  Company Number: US-SUMITOMO PHARMA SWITZERLAND GMBH-2024SPA001168

PATIENT

DRUGS (4)
  1. ORGOVYX [Suspect]
     Active Substance: RELUGOLIX
     Indication: Prostate cancer
     Dosage: 120 MG, QD
     Route: 048
     Dates: start: 20240222
  2. XTANDI [Concomitant]
     Active Substance: ENZALUTAMIDE
     Indication: Prostate cancer
     Dosage: 160 MG, QD
     Route: 065
     Dates: start: 20240322
  3. FISH OIL [Concomitant]
     Active Substance: FISH OIL
     Route: 065
  4. BAYER LOW DOSE [Concomitant]
     Active Substance: ASPIRIN
     Route: 065

REACTIONS (10)
  - Type 2 diabetes mellitus [Unknown]
  - Paraesthesia [Unknown]
  - Anxiety [Unknown]
  - Pain of skin [Unknown]
  - Nasopharyngitis [Unknown]
  - Nausea [Unknown]
  - Gynaecomastia [Unknown]
  - Fatigue [Unknown]
  - Arthralgia [Unknown]
  - Incorrect dose administered [Unknown]
